FAERS Safety Report 6702985-7 (Version None)
Quarter: 2010Q2

REPORT INFORMATION
  Report Type: 
  Country: None (occurrence: None)
  Receive Date: 20100429
  Receipt Date: 20100429
  Transmission Date: 20101027
  Serious: Yes (Death)
  Sender: FDA-Public Use
  Company Number: None

PATIENT
  Sex: Male
  Weight: 87.5442 kg

DRUGS (2)
  1. BENDAMUSTINE 100 MG/VIAL [Suspect]
     Indication: SMALL CELL LUNG CANCER STAGE UNSPECIFIED
     Dosage: 250 MG IV, D1, 2 Q 21 DAY
     Route: 042
     Dates: start: 20100315
  2. BENDAMUSTINE 100 MG/VIAL [Suspect]
     Indication: SMALL CELL LUNG CANCER STAGE UNSPECIFIED
     Dosage: 250 MG IV, D1, 2 Q 21 DAY
     Route: 042
     Dates: start: 20100316

REACTIONS (1)
  - GENERAL PHYSICAL HEALTH DETERIORATION [None]
